FAERS Safety Report 12771305 (Version 1)
Quarter: 2016Q3

REPORT INFORMATION
  Report Type: Spontaneous
  Country: US (occurrence: US)
  Receive Date: 20160919
  Receipt Date: 20160919
  Transmission Date: 20161109
  Serious: No
  Sender: FDA-Public Use
  Company Number: None

PATIENT
  Age: 57 Year
  Sex: Female

DRUGS (1)
  1. COSENTYX [Suspect]
     Active Substance: SECUKINUMAB
     Indication: PRODUCT USED FOR UNKNOWN INDICATION
     Dosage: COSENTYX 300MG - SUBCUTANEOUS - Q4WKS
     Route: 058
     Dates: start: 201601

REACTIONS (1)
  - Nasal dryness [None]

NARRATIVE: CASE EVENT DATE: 20160919
